FAERS Safety Report 18746822 (Version 1)
Quarter: 2021Q1

REPORT INFORMATION
  Report Type: Report from Study
  Country: US (occurrence: US)
  Receive Date: 20210115
  Receipt Date: 20210115
  Transmission Date: 20210419
  Serious: Yes (Death, Other)
  Sender: FDA-Public Use
  Company Number: US-MYLANLABS-2020M1095195

PATIENT
  Age: 22 Year
  Sex: Male
  Weight: 126 kg

DRUGS (7)
  1. CLOZAPINE. [Suspect]
     Active Substance: CLOZAPINE
     Indication: SCHIZOAFFECTIVE DISORDER BIPOLAR TYPE
     Dosage: UNK
     Dates: start: 201905
  2. QUETIAPINE. [Concomitant]
     Active Substance: QUETIAPINE
     Indication: INSOMNIA
     Dosage: 50 MILLIGRAM, PRN (Q4S)
     Route: 048
  3. RANITIDINE. [Concomitant]
     Active Substance: RANITIDINE
     Dosage: 150 MILLIGRAM, AM
     Route: 048
  4. PROPRANOLOL [Concomitant]
     Active Substance: PROPRANOLOL HYDROCHLORIDE
     Dosage: 20 MILLIGRAM, BID
     Route: 048
  5. HYDROXYZINE [Concomitant]
     Active Substance: HYDROXYZINE HYDROCHLORIDE
     Indication: ANXIETY
     Dosage: 50 MILLIGRAM, PRN (Q8HR)
     Route: 048
  6. HALOPERIDOL. [Concomitant]
     Active Substance: HALOPERIDOL
     Dosage: 5 MILLIGRAM, BID
     Route: 048
  7. BENZTROPINE                        /00012901/ [Concomitant]
     Active Substance: BENZTROPINE
     Dosage: 1 MILLIGRAM, BID
     Route: 048

REACTIONS (2)
  - Completed suicide [Fatal]
  - Off label use [Unknown]

NARRATIVE: CASE EVENT DATE: 201905
